FAERS Safety Report 6774859-7 (Version None)
Quarter: 2010Q2

REPORT INFORMATION
  Report Type: 
  Country: None (occurrence: None)
  Receive Date: 20100617
  Receipt Date: 20100602
  Transmission Date: 20101027
  Serious: Yes (Hospitalization)
  Sender: FDA-Public Use
  Company Number: JP-ASTRAZENECA-2010SE27744

PATIENT
  Sex: Female

DRUGS (5)
  1. ATACAND HCT [Suspect]
     Indication: HYPERTENSION
     Route: 048
  2. HUMIRA [Suspect]
     Indication: PSORIATIC ARTHROPATHY
     Route: 058
     Dates: start: 20080101, end: 20100502
  3. EFEROX 200 [Concomitant]
     Indication: HYPOTHYROIDISM
     Route: 065
  4. AGOMELATIN [Concomitant]
     Indication: DEPRESSION
     Route: 065
  5. METHOTREXATE [Concomitant]
     Indication: PSORIATIC ARTHROPATHY
     Route: 065

REACTIONS (2)
  - NEPHROLITHIASIS [None]
  - RENAL COLIC [None]
